FAERS Safety Report 6292564-0 (Version None)
Quarter: 2009Q3

REPORT INFORMATION
  Report Type: 
  Country: None (occurrence: None)
  Receive Date: 20090731
  Receipt Date: 20090728
  Transmission Date: 20100115
  Serious: Yes (Life-Threatening, Hospitalization, Other)
  Sender: FDA-Public Use
  Company Number: FR-BAYER-200926513GPV

PATIENT
  Age: 80 Year
  Sex: Male

DRUGS (7)
  1. CIFLOX [Suspect]
     Indication: PROSTATITIS
     Dosage: UNIT DOSE: 250 MG
     Route: 048
     Dates: start: 20090606, end: 20090618
  2. TRUVADA [Suspect]
     Indication: HIV INFECTION
     Route: 048
     Dates: start: 20060922, end: 20090615
  3. TARGOCID [Suspect]
     Indication: PNEUMONIA ASPIRATION
     Dosage: 1 INJECTION EVERY 3 DAYS
     Route: 042
     Dates: start: 20090618
  4. NORVIR [Concomitant]
     Indication: HIV INFECTION
     Route: 065
     Dates: end: 20090618
  5. REYATAZ [Concomitant]
     Indication: HIV INFECTION
     Dosage: UNIT DOSE: 150 MG
     Route: 065
     Dates: end: 20090618
  6. AMAREL [Concomitant]
     Indication: DIABETES MELLITUS
     Route: 065
     Dates: end: 20090618
  7. COMBIVIR [Concomitant]
     Indication: HIV INFECTION
     Route: 065

REACTIONS (8)
  - ACUTE RESPIRATORY DISTRESS SYNDROME [None]
  - CYANOSIS [None]
  - HYPOTENSION [None]
  - LIVEDO RETICULARIS [None]
  - PYREXIA [None]
  - REFLUX OESOPHAGITIS [None]
  - RENAL FAILURE [None]
  - TACHYPNOEA [None]
